FAERS Safety Report 8332877-1 (Version None)
Quarter: 2012Q2

REPORT INFORMATION
  Report Type: 
  Country: None (occurrence: None)
  Receive Date: 20120503
  Receipt Date: 20120430
  Transmission Date: 20120825
  Serious: No
  Sender: FDA-Public Use
  Company Number: US-PFIZER INC-2012083339

PATIENT
  Sex: Female

DRUGS (3)
  1. RAPAMUNE [Suspect]
     Indication: IMMUNOSUPPRESSION
     Dosage: 1 MG, DAILY
     Route: 048
     Dates: start: 20120106, end: 20120113
  2. MYFORTIC [Concomitant]
     Indication: IMMUNOSUPPRESSION
     Dosage: 180 MG, 2X/DAY
     Dates: start: 20110908
  3. PROGRAF [Concomitant]
     Indication: IMMUNOSUPPRESSION
     Dosage: 2.5 MG, 2X/DAY
     Dates: start: 20110908

REACTIONS (1)
  - STOMATITIS [None]
